FAERS Safety Report 16946464 (Version 1)
Quarter: 2019Q4

REPORT INFORMATION
  Report Type: Spontaneous
  Country: CN (occurrence: CN)
  Receive Date: 20191022
  Receipt Date: 20191022
  Transmission Date: 20200122
  Serious: Yes (Hospitalization, Disabling)
  Sender: FDA-Public Use
  Company Number: CN-ROCHE-2436879

PATIENT
  Age: 75 Year
  Sex: Female
  Weight: 50 kg

DRUGS (5)
  1. DOXORUBICIN HYDROCHLORIDE LIPOSOME [Suspect]
     Active Substance: DOXORUBICIN HYDROCHLORIDE
     Indication: DIFFUSE LARGE B-CELL LYMPHOMA
     Dosage: ONCE
     Route: 041
     Dates: start: 20190917, end: 20190917
  2. MABTHERA [Suspect]
     Active Substance: RITUXIMAB
     Indication: DIFFUSE LARGE B-CELL LYMPHOMA
     Dosage: ONCE
     Route: 041
     Dates: start: 20190916, end: 20190916
  3. VINCRISTINE SULFATE. [Suspect]
     Active Substance: VINCRISTINE SULFATE
     Indication: DIFFUSE LARGE B-CELL LYMPHOMA
     Route: 042
     Dates: start: 20190917, end: 20190917
  4. GLUCOSE [Concomitant]
     Active Substance: DEXTROSE
     Indication: DIFFUSE LARGE B-CELL LYMPHOMA
     Dosage: SOLVENT FOR DOXORUBICIN HYDROCHLORIDE LIPOSOME INJECTION, ONCE
     Route: 041
     Dates: start: 20190917, end: 20190917
  5. SODIUM CHLORIDE. [Concomitant]
     Active Substance: SODIUM CHLORIDE
     Indication: DIFFUSE LARGE B-CELL LYMPHOMA
     Route: 041
     Dates: start: 20190916, end: 20190916

REACTIONS (1)
  - Full blood count decreased [Unknown]
